FAERS Safety Report 9089950 (Version 3)
Quarter: 2013Q3

REPORT INFORMATION
  Report Type: Spontaneous
  Country: US (occurrence: US)
  Receive Date: 20130201
  Receipt Date: 20130723
  Transmission Date: 20140515
  Serious: Yes (Hospitalization)
  Sender: FDA-Public Use
  Company Number: US-PFIZER INC-2013038633

PATIENT
  Age: 47 Year
  Sex: Female

DRUGS (17)
  1. XALKORI [Suspect]
     Indication: LUNG NEOPLASM MALIGNANT
     Dosage: 250 MG, ONE CAPSULE TWICE DAILY
     Route: 048
     Dates: start: 20120621
  2. XALKORI [Suspect]
     Dosage: 250 MG, ONE CAPSULE TWICE DAILY
     Route: 048
     Dates: start: 20120626
  3. ZANTAC [Concomitant]
     Dosage: 150 MG, UNK
  4. LASIX [Concomitant]
     Dosage: 40 MG, UNK
  5. PROVENTIL INHALER [Concomitant]
  6. PRO-AIR [Concomitant]
  7. VENTOLIN [Concomitant]
  8. XGEVA [Concomitant]
     Dosage: 120 MG/1.7 ML
     Route: 058
  9. CLARITIN [Concomitant]
     Route: 048
  10. TESSALON [Concomitant]
     Dosage: 100 MG, UNK
  11. FLONASE [Concomitant]
     Dosage: 50 MCG/SPRAYNASAL SPRAY
     Route: 045
  12. FOLIC ACID [Concomitant]
     Dosage: 1 MG, UNK
  13. ACAI [Concomitant]
     Route: 048
  14. MOTRIN [Concomitant]
     Dosage: 600 MG, UNK
  15. CALTRATE 600+D [Concomitant]
     Dosage: CALTRATE 600 + VIT D 600 MG-200 UNIT TABLET
  16. VITAMIN D3 [Concomitant]
     Dosage: 400 UNIT TABLET
  17. FISH OIL [Concomitant]
     Dosage: 1200 MG, UNK

REACTIONS (4)
  - Sepsis [Unknown]
  - Sinusitis [Unknown]
  - Dizziness [Unknown]
  - Sleep disorder [Unknown]
